FAERS Safety Report 16724652 (Version 3)
Quarter: 2020Q2

REPORT INFORMATION
  Report Type: Spontaneous
  Country: CA (occurrence: CA)
  Receive Date: 20190821
  Receipt Date: 20200421
  Transmission Date: 20200713
  Serious: Yes (Hospitalization, Other)
  Sender: FDA-Public Use
  Company Number: PHHY2019CA192974

PATIENT
  Age: 78 Year
  Sex: Female

DRUGS (51)
  1. VOLTAREN [Suspect]
     Active Substance: DICLOFENAC SODIUM
     Indication: PAIN
  2. CLOPIDOGREL [Suspect]
     Active Substance: CLOPIDOGREL BISULFATE
     Indication: MOBILITY DECREASED
  3. METHOTREXATE. [Suspect]
     Active Substance: METHOTREXATE
     Indication: PAIN
  4. GOLD [Suspect]
     Active Substance: GOLD
     Indication: PAIN
  5. MOTRIN [Suspect]
     Active Substance: IBUPROFEN
     Indication: MOBILITY DECREASED
  6. APO-DICLOFENAC [Suspect]
     Active Substance: DICLOFENAC
     Indication: RHEUMATOID ARTHRITIS
     Route: 061
  7. DICLOFENAC POTASSIUM. [Suspect]
     Active Substance: DICLOFENAC POTASSIUM
     Indication: RHEUMATOID ARTHRITIS
     Dosage: UNK
     Route: 065
  8. METHOTREXATE. [Suspect]
     Active Substance: METHOTREXATE
     Indication: RHEUMATOID ARTHRITIS
     Dosage: UNK
     Route: 065
  9. METHOTREXATE. [Suspect]
     Active Substance: METHOTREXATE
     Indication: MOBILITY DECREASED
  10. NAPROXEN. [Suspect]
     Active Substance: NAPROXEN
     Indication: RHEUMATOID ARTHRITIS
     Dosage: UNK
     Route: 065
  11. DICLOFENAC SODIUM. [Suspect]
     Active Substance: DICLOFENAC SODIUM
     Indication: RHEUMATOID ARTHRITIS
     Dosage: UNK
     Route: 065
  12. VOLTAREN [Suspect]
     Active Substance: DICLOFENAC SODIUM
     Indication: JOINT STIFFNESS
  13. VITAMIN C [Suspect]
     Active Substance: ASCORBIC ACID
     Indication: RHEUMATOID ARTHRITIS
     Dosage: UNK
     Route: 065
  14. ARAVA [Suspect]
     Active Substance: LEFLUNOMIDE
     Indication: PAIN
  15. ARAVA [Suspect]
     Active Substance: LEFLUNOMIDE
     Indication: JOINT STIFFNESS
  16. HUMIRA [Suspect]
     Active Substance: ADALIMUMAB
     Indication: MOBILITY DECREASED
  17. PLAQUENIL [Suspect]
     Active Substance: HYDROXYCHLOROQUINE SULFATE
     Indication: PAIN
  18. PLAQUENIL [Suspect]
     Active Substance: HYDROXYCHLOROQUINE SULFATE
     Indication: JOINT STIFFNESS
  19. TRAMADOL. [Suspect]
     Active Substance: TRAMADOL
     Indication: PRODUCT USED FOR UNKNOWN INDICATION
     Dosage: UNK
     Route: 065
  20. ARAVA [Suspect]
     Active Substance: LEFLUNOMIDE
     Indication: RHEUMATOID ARTHRITIS
     Dosage: UNK
     Route: 048
  21. ENBREL [Suspect]
     Active Substance: ETANERCEPT
     Indication: RHEUMATOID ARTHRITIS
     Dosage: UNK
     Route: 058
  22. PLAQUENIL [Suspect]
     Active Substance: HYDROXYCHLOROQUINE SULFATE
     Indication: RHEUMATOID ARTHRITIS
     Dosage: UNK
     Route: 048
  23. PLAQUENIL [Suspect]
     Active Substance: HYDROXYCHLOROQUINE SULFATE
     Indication: MOBILITY DECREASED
  24. ASPIRIN. [Suspect]
     Active Substance: ASPIRIN
     Indication: RHEUMATOID ARTHRITIS
     Route: 065
  25. ASPIRIN. [Suspect]
     Active Substance: ASPIRIN
     Indication: JOINT STIFFNESS
  26. IBUPROFEN. [Suspect]
     Active Substance: IBUPROFEN
     Indication: RHEUMATOID ARTHRITIS
     Route: 065
  27. VOLTAREN [Suspect]
     Active Substance: DICLOFENAC SODIUM
     Indication: MOBILITY DECREASED
  28. CLOPIDOGREL [Suspect]
     Active Substance: CLOPIDOGREL BISULFATE
     Indication: PAIN
  29. CLOPIDOGREL [Suspect]
     Active Substance: CLOPIDOGREL BISULFATE
     Indication: JOINT STIFFNESS
  30. GOLD [Suspect]
     Active Substance: GOLD
     Indication: JOINT STIFFNESS
  31. NAPROXEN. [Suspect]
     Active Substance: NAPROXEN
     Indication: MOBILITY DECREASED
  32. ASPIRIN. [Suspect]
     Active Substance: ASPIRIN
     Indication: PAIN
  33. CLOPIDOGREL [Suspect]
     Active Substance: CLOPIDOGREL BISULFATE
     Indication: RHEUMATOID ARTHRITIS
     Dosage: UNK
     Route: 065
  34. METHOTREXATE. [Suspect]
     Active Substance: METHOTREXATE
     Indication: JOINT STIFFNESS
  35. MOTRIN [Suspect]
     Active Substance: IBUPROFEN
     Indication: RHEUMATOID ARTHRITIS
     Dosage: UNK
     Route: 065
  36. MOTRIN [Suspect]
     Active Substance: IBUPROFEN
     Indication: PAIN
  37. NAPROXEN. [Suspect]
     Active Substance: NAPROXEN
     Indication: PAIN
  38. HYDROXYCHLOROQUINE [Suspect]
     Active Substance: HYDROXYCHLOROQUINE
     Indication: RHEUMATOID ARTHRITIS
     Route: 065
  39. GOLD [Suspect]
     Active Substance: GOLD
     Indication: RHEUMATOID ARTHRITIS
     Dosage: UNK
     Route: 065
  40. GOLD [Suspect]
     Active Substance: GOLD
     Indication: MOBILITY DECREASED
  41. HUMIRA [Suspect]
     Active Substance: ADALIMUMAB
     Indication: RHEUMATOID ARTHRITIS
     Dosage: UNK
     Route: 058
  42. HUMIRA [Suspect]
     Active Substance: ADALIMUMAB
     Indication: JOINT STIFFNESS
  43. NAPROXEN. [Suspect]
     Active Substance: NAPROXEN
     Indication: JOINT STIFFNESS
  44. VOLTAREN [Suspect]
     Active Substance: DICLOFENAC SODIUM
     Indication: RHEUMATOID ARTHRITIS
     Route: 065
  45. ARAVA [Suspect]
     Active Substance: LEFLUNOMIDE
     Indication: MOBILITY DECREASED
  46. ASA [Suspect]
     Active Substance: ASPIRIN
     Indication: RHEUMATOID ARTHRITIS
     Dosage: 325 MG (DELAYED RELEASE)
     Route: 065
  47. HUMIRA [Suspect]
     Active Substance: ADALIMUMAB
     Indication: PAIN
  48. MOTRIN [Suspect]
     Active Substance: IBUPROFEN
     Indication: JOINT STIFFNESS
  49. ASPIRIN. [Suspect]
     Active Substance: ASPIRIN
     Indication: MOBILITY DECREASED
  50. SULFAMETHOXAZOLE [Suspect]
     Active Substance: SULFAMETHOXAZOLE
     Indication: RHEUMATOID ARTHRITIS
     Route: 065
  51. TRIMETHOPRIM. [Suspect]
     Active Substance: TRIMETHOPRIM
     Indication: RHEUMATOID ARTHRITIS
     Route: 065

REACTIONS (22)
  - Headache [Recovered/Resolved]
  - Deafness [Unknown]
  - Functional gastrointestinal disorder [Unknown]
  - Weight decreased [Recovered/Resolved]
  - Arthropathy [Unknown]
  - Decreased appetite [Recovered/Resolved]
  - Vomiting [Recovered/Resolved]
  - Abdominal discomfort [Unknown]
  - Musculoskeletal disorder [Unknown]
  - Pharyngitis [Recovered/Resolved]
  - Off label use [Unknown]
  - Hypophagia [Recovered/Resolved]
  - Nausea [Recovered/Resolved]
  - Eating disorder [Unknown]
  - Deafness transitory [Recovered/Resolved]
  - Ear infection [Recovered/Resolved]
  - Gastrointestinal pain [Recovered/Resolved]
  - Dizziness [Recovered/Resolved]
  - Drug hypersensitivity [Unknown]
  - Gastrointestinal disorder [Unknown]
  - Abdominal pain upper [Unknown]
  - Feeding disorder [Unknown]
